FAERS Safety Report 7424017-8 (Version None)
Quarter: 2011Q2

REPORT INFORMATION
  Report Type: 
  Country: None (occurrence: None)
  Receive Date: 20110419
  Receipt Date: 20110324
  Transmission Date: 20111010
  Serious: No
  Sender: FDA-Public Use
  Company Number: US-B.I. PHARMACEUTICALS,INC./RIDGEFIELD-2011-BP-09173BP

PATIENT
  Sex: Male

DRUGS (7)
  1. LEVOTHYROXINE SODIUM [Concomitant]
     Indication: HYPOTHYROIDISM
     Dosage: 125 MG
     Route: 048
  2. DIGOXIN [Concomitant]
     Indication: CARDIAC DISORDER
     Dosage: 0.125 MG
     Route: 048
  3. CARVEDILOL [Concomitant]
     Indication: CARDIAC DISORDER
     Dosage: 6 MG
     Route: 048
  4. SPIRONOLACTONE [Concomitant]
     Indication: CARDIAC DISORDER
     Dosage: 25 MG
     Route: 048
  5. FUROSEMIDE [Concomitant]
     Indication: FLUID RETENTION
     Dosage: 80 MG
     Route: 048
  6. PRADAXA [Suspect]
     Indication: ATRIAL FIBRILLATION
     Dosage: 300 MG
     Route: 048
     Dates: start: 20110322
  7. HYDROXYZINE [Concomitant]
     Indication: PRURITUS
     Dosage: 50 MG
     Route: 048

REACTIONS (1)
  - SWELLING FACE [None]
